FAERS Safety Report 14895817 (Version 1)
Quarter: 2018Q2

REPORT INFORMATION
  Report Type: Spontaneous
  Country: US (occurrence: US)
  Receive Date: 20180515
  Receipt Date: 20180515
  Transmission Date: 20180711
  Serious: Yes (Life-Threatening, Hospitalization, Disabling, Other)
  Sender: FDA-Public Use
  Company Number: US-OTSUKA-2018_012206

PATIENT
  Sex: Female

DRUGS (1)
  1. ABILIFY [Suspect]
     Active Substance: ARIPIPRAZOLE
     Indication: OBSESSIVE-COMPULSIVE DISORDER
     Dosage: UNK
     Route: 048
     Dates: start: 2013

REACTIONS (24)
  - Infection [Unknown]
  - Dysuria [Unknown]
  - Eating disorder [Unknown]
  - Heart rate increased [Unknown]
  - Suicidal ideation [Recovered/Resolved]
  - Apparent death [Unknown]
  - Bladder spasm [Unknown]
  - Weight increased [Recovering/Resolving]
  - Regressive behaviour [Unknown]
  - Post-traumatic stress disorder [Not Recovered/Not Resolved]
  - Feeling abnormal [Unknown]
  - Brain injury [Not Recovered/Not Resolved]
  - Multiple organ dysfunction syndrome [Not Recovered/Not Resolved]
  - Speech disorder [Unknown]
  - Bladder injury [Unknown]
  - Sleep terror [Unknown]
  - Drug ineffective for unapproved indication [Unknown]
  - Mental disorder [Unknown]
  - Anxiety [Unknown]
  - Infectious mononucleosis [Unknown]
  - Adverse event [Unknown]
  - Bladder disorder [Not Recovered/Not Resolved]
  - Hallucination [Unknown]
  - Dizziness [Unknown]

NARRATIVE: CASE EVENT DATE: 2013
